FAERS Safety Report 9937303 (Version 1)
Quarter: 2014Q1

REPORT INFORMATION
  Report Type: Spontaneous
  Country: US (occurrence: US)
  Receive Date: 20140302
  Receipt Date: 20140302
  Transmission Date: 20141002
  Serious: No
  Sender: FDA-Public Use
  Company Number: US-009507513-1402USA013015

PATIENT
  Age: 23 Year
  Sex: Female
  Weight: 88.44 kg

DRUGS (1)
  1. NEXPLANON [Suspect]
     Indication: CONTRACEPTION
     Dosage: 68 MG/ONE ROD INSERTED, EVERY THREE YEARS
     Route: 059
     Dates: start: 20131106

REACTIONS (1)
  - Menorrhagia [Recovering/Resolving]
